FAERS Safety Report 17857574 (Version 1)
Quarter: 2020Q2

REPORT INFORMATION
  Report Type: Spontaneous
  Country: ES (occurrence: ES)
  Receive Date: 20200604
  Receipt Date: 20200604
  Transmission Date: 20200714
  Serious: Yes (Life-Threatening)
  Sender: FDA-Public Use
  Company Number: ES-TEVA-2020-ES-1243295

PATIENT
  Age: 91 Year
  Sex: Female

DRUGS (12)
  1. LANSOPRAZOL 30 MG CAPSULA [Suspect]
     Active Substance: LANSOPRAZOLE
     Indication: OESOPHAGITIS
     Dosage: 30 MG
     Route: 048
     Dates: start: 20130418, end: 20200519
  2. ORFIDAL 1 MG COMPRIMIDOS, 50 COMPRIMIDOS [Concomitant]
     Active Substance: LORAZEPAM
  3. LEVOGASTROL 25 MG COMPRIMIDOS , 30 COMPRIMIDOS [Concomitant]
  4. FOSFOMICINA ABAMED 3G GRANULADO PARA SOLUCION ORAL EN SOBRES EFG 2 SOB [Concomitant]
  5. FUROSEMIDA 40 MG COMPRIMIDO [Concomitant]
     Active Substance: FUROSEMIDE
  6. HEIPRAM 15 MG COMPRIMIDOS RECUBIERTOS CON PELICULA EFG, 56 COMPRIMIDOS [Concomitant]
     Active Substance: ESCITALOPRAM OXALATE
  7. CIPROFLOXACINO 500 MG COMPRIMIDO [Concomitant]
     Active Substance: CIPROFLOXACIN
  8. TRAMADOL + PARACETAMOL [Concomitant]
     Active Substance: ACETAMINOPHEN\TRAMADOL
  9. NEURONTIN 300 MG CAPSULAS DURAS , 90 CAPSULAS [Concomitant]
  10. TRAZODONA 100 MG COMPRIMIDO [Concomitant]
  11. FLUOROMETOLONA 1 MG/ML COLIRIO [Concomitant]
  12. QUETIAPINA 50 MG COMPRIMIDO [Concomitant]
     Active Substance: QUETIAPINE FUMARATE

REACTIONS (1)
  - Thrombocytopenia [Recovered/Resolved]

NARRATIVE: CASE EVENT DATE: 20200515
